FAERS Safety Report 26172378 (Version 1)
Quarter: 2025Q4

REPORT INFORMATION
  Report Type: Spontaneous
  Country: US (occurrence: US)
  Receive Date: 20251218
  Receipt Date: 20251218
  Transmission Date: 20260118
  Serious: No
  Sender: SANOFI AVENTIS
  Company Number: US-SA-2025SA375495

PATIENT
  Age: 26 Year
  Sex: Male
  Weight: 88.64 kg

DRUGS (2)
  1. DUPIXENT [Suspect]
     Active Substance: DUPILUMAB
     Indication: Dermatitis atopic
     Dosage: 300 MG, QOW
     Route: 058
  2. ONE A DAY [MINERALS NOS;VITAMINS NOS] [Concomitant]
     Dosage: UNK

REACTIONS (10)
  - Influenza like illness [Unknown]
  - Injection site haemorrhage [Unknown]
  - Skin fissures [Unknown]
  - Condition aggravated [Unknown]
  - Dry skin [Unknown]
  - Arthritis [Unknown]
  - Chest pain [Unknown]
  - Hand-foot-and-mouth disease [Recovered/Resolved]
  - Pruritus [Unknown]
  - Injection site pain [Unknown]

NARRATIVE: CASE EVENT DATE: 20240101
